FAERS Safety Report 7493789-9 (Version None)
Quarter: 2011Q2

REPORT INFORMATION
  Report Type: 
  Country: None (occurrence: None)
  Receive Date: 20110520
  Receipt Date: 20110311
  Transmission Date: 20111010
  Serious: No
  Sender: FDA-Public Use
  Company Number: US-ASTRAZENECA-2011SE13806

PATIENT
  Age: 57 Year
  Sex: Female
  Weight: 90.7 kg

DRUGS (5)
  1. OMEPRAZOLE [Concomitant]
     Indication: PROPHYLAXIS AGAINST GASTROINTESTINAL ULCER
  2. LORTAB [Suspect]
     Indication: PAIN
     Route: 048
  3. VIMOVO [Suspect]
     Indication: ARTHRITIS
     Dosage: 500MG/20MG DAILY
     Route: 048
     Dates: start: 20110310
  4. CELEBREX [Concomitant]
     Indication: ARTHRITIS
  5. ASPIRIN [Concomitant]
     Indication: CARDIAC DISORDER

REACTIONS (2)
  - VOMITING [None]
  - IRRITABILITY [None]
